FAERS Safety Report 14758916 (Version 5)
Quarter: 2020Q2

REPORT INFORMATION
  Report Type: Spontaneous
  Country: US (occurrence: US)
  Receive Date: 20180413
  Receipt Date: 20200610
  Transmission Date: 20200713
  Serious: Yes (Hospitalization)
  Sender: FDA-Public Use
  Company Number: US-PFIZER INC-2018147079

PATIENT
  Age: 33 Year
  Sex: Female

DRUGS (1)
  1. GABAPENTIN. [Suspect]
     Active Substance: GABAPENTIN
     Dosage: 24 G, SINGLE RECREATIONAL INGESTION

REACTIONS (4)
  - Tonic clonic movements [Unknown]
  - Overdose [Unknown]
  - Metabolic acidosis [Unknown]
  - Loss of consciousness [Unknown]
